FAERS Safety Report 7283465-X (Version None)
Quarter: 2011Q1

REPORT INFORMATION
  Report Type: 
  Country: None (occurrence: None)
  Receive Date: 20110125
  Receipt Date: 20110117
  Transmission Date: 20110831
  Serious: No
  Sender: FDA-Public Use
  Company Number: DSU-2011-00170

PATIENT
  Age: 68 Year
  Sex: Female
  Weight: 56.246 kg

DRUGS (7)
  1. LOTREL (AMLODIPINE, BENAZEPRIL HYDROCHLORIDE) (AMLODIPINE, BENAZEPRIL [Concomitant]
  2. HYOSCYAMINE (HYOSCYAMINE) (HYOSCYAMINE) [Concomitant]
  3. HCTZ (HYDROCHLOROTHIAZIDE) (HYDROCHLOROTHIAZIDE) [Concomitant]
  4. WELCHOL [Suspect]
     Indication: IMPAIRED GASTRIC EMPTYING
     Dosage: 3750 MG (1875 MG, BID), PER ORAL
     Route: 048
     Dates: start: 20080201, end: 20081201
  5. WELCHOL [Suspect]
     Indication: GALLBLADDER DISORDER
     Dosage: 3750 MG (1875 MG, BID), PER ORAL
     Route: 048
     Dates: start: 20080201, end: 20081201
  6. IMIPRAMINE [Concomitant]
  7. NEXIUM [Concomitant]

REACTIONS (3)
  - RETCHING [None]
  - DYSPHAGIA [None]
  - TABLET PHYSICAL ISSUE [None]
